FAERS Safety Report 11047353 (Version 2)
Quarter: 2015Q2

REPORT INFORMATION
  Report Type: Spontaneous
  Country: JP (occurrence: None)
  Receive Date: 20150416
  Receipt Date: 20150622
  Transmission Date: 20150821
  Serious: Yes (Death, Other)
  Sender: FDA-Public Use
  Company Number: ADR-2015-00709

PATIENT
  Age: 66 Year
  Sex: Male

DRUGS (1)
  1. GABALON INTRATHECAL (0.05%) [Suspect]
     Active Substance: BACLOFEN

REACTIONS (3)
  - Condition aggravated [None]
  - Pyelonephritis [None]
  - Death [None]
